FAERS Safety Report 14786772 (Version 2)
Quarter: 2019Q1

REPORT INFORMATION
  Report Type: Spontaneous
  Country: US (occurrence: US)
  Receive Date: 20180420
  Receipt Date: 20190110
  Transmission Date: 20190417
  Serious: No
  Sender: FDA-Public Use
  Company Number: US-ACTELION-A-US2018-169918

PATIENT
  Age: 69 Year
  Sex: Male

DRUGS (3)
  1. OPSUMIT [Suspect]
     Active Substance: MACITENTAN
     Indication: PULMONARY ARTERIAL HYPERTENSION
     Dosage: 10 MG, QD
     Route: 048
     Dates: start: 201803
  2. ADEMPAS [Suspect]
     Active Substance: RIOCIGUAT
     Dosage: 0.5 MG, TID
     Route: 065
  3. ADEMPAS [Suspect]
     Active Substance: RIOCIGUAT
     Indication: PRODUCT USED FOR UNKNOWN INDICATION
     Dosage: 1 MG, TID
     Route: 065

REACTIONS (13)
  - Dyspepsia [Unknown]
  - Throat tightness [Not Recovered/Not Resolved]
  - Fatigue [Not Recovered/Not Resolved]
  - Dysphagia [Unknown]
  - Epistaxis [Not Recovered/Not Resolved]
  - Pain [Unknown]
  - Aphasia [Not Recovered/Not Resolved]
  - Headache [Unknown]
  - Dizziness [Unknown]
  - Dyspnoea exertional [Unknown]
  - Nasal congestion [Not Recovered/Not Resolved]
  - Pain in jaw [Not Recovered/Not Resolved]
  - Hypersomnia [Not Recovered/Not Resolved]
